FAERS Safety Report 7912170-9 (Version None)
Quarter: 2011Q4

REPORT INFORMATION
  Report Type: 
  Country: None (occurrence: None)
  Receive Date: 20111114
  Receipt Date: 20111104
  Transmission Date: 20120403
  Serious: Yes (Hospitalization)
  Sender: FDA-Public Use
  Company Number: US-ACTELION-A-US2011-55626

PATIENT

DRUGS (3)
  1. TRACLEER [Suspect]
     Indication: PULMONARY ARTERIAL HYPERTENSION
     Dosage: UNK
     Route: 048
     Dates: start: 20090309
  2. CALCIUM CHANNEL BLOCKERS [Concomitant]
  3. VIAGRA [Concomitant]

REACTIONS (5)
  - PNEUMONIA [None]
  - PANIC ATTACK [None]
  - DYSPNOEA [None]
  - KIDNEY INFECTION [None]
  - NERVOUSNESS [None]
